FAERS Safety Report 4687123-7 (Version None)
Quarter: 2005Q2

REPORT INFORMATION
  Report Type: 
  Country: None (occurrence: None)
  Receive Date: 20050607
  Receipt Date: 20050523
  Transmission Date: 20051028
  Serious: Yes (Hospitalization, Other)
  Sender: FDA-Public Use
  Company Number: US_0503114450

PATIENT
  Sex: Female
  Weight: 66 kg

DRUGS (11)
  1. ZYPREXA [Suspect]
     Indication: DEMENTIA ALZHEIMER'S TYPE
     Dosage: 10 MG DAY
     Dates: start: 20030101, end: 20040101
  2. TOPROL-XL [Concomitant]
  3. SENOKOT (SENNA ALEXANDRINA) [Concomitant]
  4. OSCAL (CALCIUM CARBONATE) [Concomitant]
  5. FOLIC ACID [Concomitant]
  6. PLAVIX [Concomitant]
  7. PREVACID [Concomitant]
  8. ISMO [Concomitant]
  9. ASPIRIN [Concomitant]
  10. FUROSEMIDE (FUROSEMIDE 00032601/) [Concomitant]
  11. REMINYL [Concomitant]

REACTIONS (8)
  - ABDOMINAL PAIN [None]
  - BACTERIAL INFECTION [None]
  - CHEST PAIN [None]
  - CULTURE URINE POSITIVE [None]
  - HAEMORRHOIDAL HAEMORRHAGE [None]
  - HEPATIC CYST [None]
  - NEPHROLITHIASIS [None]
  - PANCREATITIS [None]
